FAERS Safety Report 8398716-8 (Version None)
Quarter: 2012Q2

REPORT INFORMATION
  Report Type: 
  Country: None (occurrence: None)
  Receive Date: 20120524
  Receipt Date: 20120514
  Transmission Date: 20120825
  Serious: Yes (Hospitalization)
  Sender: FDA-Public Use
  Company Number: 2012SP026323

PATIENT
  Age: 53 Year
  Sex: Female

DRUGS (8)
  1. LIPITOR [Concomitant]
  2. SEROQUEL [Concomitant]
  3. METFORMIN HCL [Concomitant]
  4. SYNTHROID [Concomitant]
  5. LITHIUM [Concomitant]
  6. SAPHRIS [Suspect]
     Indication: BIPOLAR DISORDER
     Dosage: 10 MG; HS; SL, 5 MG; HS; SL
     Route: 060
     Dates: start: 20120301, end: 20120502
  7. SAPHRIS [Suspect]
     Indication: BIPOLAR DISORDER
     Dosage: 10 MG; HS; SL, 5 MG; HS; SL
     Route: 060
     Dates: start: 20120503
  8. EZETIMIBE [Concomitant]

REACTIONS (7)
  - CONVULSION [None]
  - GAIT DISTURBANCE [None]
  - PARKINSONISM [None]
  - BLEPHAROSPASM [None]
  - INAPPROPRIATE SCHEDULE OF DRUG ADMINISTRATION [None]
  - ATAXIA [None]
  - LETHARGY [None]
